FAERS Safety Report 8055405-7 (Version None)
Quarter: 2012Q1

REPORT INFORMATION
  Report Type: 
  Country: None (occurrence: None)
  Receive Date: 20120119
  Receipt Date: 20120118
  Transmission Date: 20120608
  Serious: Yes (Death)
  Sender: FDA-Public Use
  Company Number: PHEH2012US001626

PATIENT
  Sex: Male

DRUGS (7)
  1. AVASTIN [Concomitant]
  2. MULTIVITAMIN ^LAPPE^ [Concomitant]
  3. PACLITAXEL [Concomitant]
  4. GEMZAR [Concomitant]
  5. IRINOTECAN HCL [Concomitant]
     Dosage: UNK
  6. TOBI [Suspect]
     Dosage: 300 MG, BID
  7. CARBOPLATIN [Concomitant]

REACTIONS (2)
  - GENERAL PHYSICAL CONDITION ABNORMAL [None]
  - DEATH [None]
